FAERS Safety Report 20108572 (Version 2)
Quarter: 2022Q1

REPORT INFORMATION
  Report Type: Spontaneous
  Country: JP (occurrence: JP)
  Receive Date: 20211124
  Receipt Date: 20220201
  Transmission Date: 20220423
  Serious: Yes (Life-Threatening, Hospitalization)
  Sender: FDA-Public Use
  Company Number: JP-ELI_LILLY_AND_COMPANY-JP202111009311

PATIENT
  Age: 25 Year
  Sex: Male

DRUGS (11)
  1. ZYPREXA [Suspect]
     Active Substance: OLANZAPINE
     Indication: Schizophrenia
     Dosage: 5 MG, DAILY
     Route: 048
     Dates: start: 2015
  2. STRATTERA [Suspect]
     Active Substance: ATOMOXETINE HYDROCHLORIDE
     Indication: Attention deficit hyperactivity disorder
     Dosage: 40 MG, BID
     Route: 048
     Dates: start: 201703
  3. DULOXETINE HYDROCHLORIDE [Suspect]
     Active Substance: DULOXETINE HYDROCHLORIDE
     Indication: Schizophrenia
     Dosage: 60 MG, EACH EVENING
     Route: 048
     Dates: start: 201802
  4. INTUNIV [Suspect]
     Active Substance: GUANFACINE HYDROCHLORIDE
     Indication: Attention deficit hyperactivity disorder
     Dosage: 1 MG, DAILY
     Route: 048
     Dates: start: 20210812
  5. BROTIZOLAM [Suspect]
     Active Substance: BROTIZOLAM
     Indication: Insomnia
     Dosage: 0.25 NG, DAILY
     Route: 048
  6. REFLEX [Suspect]
     Active Substance: MIRTAZAPINE
     Indication: Schizophrenia
     Dosage: 15 MG, DAILY
     Route: 048
     Dates: start: 20161201
  7. BELSOMRA [Suspect]
     Active Substance: SUVOREXANT
     Indication: Insomnia
     Dosage: 20 MG, DAILY
     Route: 048
     Dates: start: 20200827
  8. MAGNESIUM OXIDE [Suspect]
     Active Substance: MAGNESIUM OXIDE
     Indication: Constipation
     Dosage: 500 MG, DAILY
     Route: 048
     Dates: start: 20161201
  9. VALPROATE SODIUM [Suspect]
     Active Substance: VALPROATE SODIUM
     Indication: Schizophrenia
     Dosage: 400 MG, BID
     Dates: start: 20170921
  10. CALONAL [Suspect]
     Active Substance: ACETAMINOPHEN
     Indication: Product used for unknown indication
     Dosage: 600 MG, TID
     Route: 048
  11. SENNOSIDES A AND B [Suspect]
     Active Substance: SENNOSIDES A AND B
     Indication: Product used for unknown indication
     Dosage: 12 MG, PRN
     Route: 048

REACTIONS (4)
  - Suicide attempt [Recovered/Resolved]
  - Off label use [Unknown]
  - Intentional overdose [Unknown]
  - Overdose [Unknown]

NARRATIVE: CASE EVENT DATE: 20210824
